FAERS Safety Report 8007346-9 (Version None)
Quarter: 2011Q4

REPORT INFORMATION
  Report Type: 
  Country: None (occurrence: None)
  Receive Date: 20111227
  Receipt Date: 20111222
  Transmission Date: 20120403
  Serious: Yes (Other)
  Sender: FDA-Public Use
  Company Number: US-JNJFOC-2007326041

PATIENT

DRUGS (3)
  1. SUDAFED 24 HOUR [Suspect]
     Route: 064
  2. SUDAFED 24 HOUR [Suspect]
     Indication: PRODUCT USED FOR UNKNOWN INDICATION
     Dosage: DAILY DOSE TEXT: 2 PILLS ONCE
     Route: 064
     Dates: start: 20070703, end: 20070703
  3. PRIMACARE [Concomitant]
     Indication: PRENATAL CARE
     Dosage: DAILY DOSE TEXT: UNKNOWN
     Route: 064
     Dates: start: 20070101

REACTIONS (1)
  - FOETAL EXPOSURE DURING PREGNANCY [None]
